FAERS Safety Report 10025945 (Version 1)
Quarter: 2014Q1

REPORT INFORMATION
  Report Type: Spontaneous
  Country: JP (occurrence: JP)
  Receive Date: 20140320
  Receipt Date: 20140320
  Transmission Date: 20141002
  Serious: Yes (Death, Other)
  Sender: FDA-Public Use
  Company Number: JP-MERCK-1403JPN008365

PATIENT
  Age: 65 Year
  Sex: Male

DRUGS (2)
  1. DEXAMETHASONE [Suspect]
     Indication: POEMS SYNDROME
     Route: 048
  2. MELPHALAN [Suspect]
     Indication: POEMS SYNDROME

REACTIONS (2)
  - Pneumonia [Fatal]
  - Cerebral infarction [Fatal]
